FAERS Safety Report 26120024 (Version 2)
Quarter: 2025Q4

REPORT INFORMATION
  Report Type: Spontaneous
  Country: JP (occurrence: JP)
  Receive Date: 20251204
  Receipt Date: 20251217
  Transmission Date: 20260118
  Serious: Yes (Death, Other)
  Sender: RANBAXY
  Company Number: JP-SUN PHARMACEUTICAL INDUSTRIES LTD-2025RR-539050

PATIENT
  Age: 74 Year
  Sex: Male

DRUGS (3)
  1. ACETAMINOPHEN [Suspect]
     Active Substance: ACETAMINOPHEN
     Indication: Rib fracture
     Dosage: UNK
     Route: 065
     Dates: start: 202405
  2. PREDNISOLONE [Suspect]
     Active Substance: PREDNISOLONE
     Indication: Product used for unknown indication
     Dosage: 500 MILLIGRAM, ADMINISTERED FOR 3 DAYS
     Route: 065
     Dates: start: 202406
  3. PREDNISOLONE [Suspect]
     Active Substance: PREDNISOLONE
     Dosage: 50 MILLIGRAM, DAILY
     Route: 065

REACTIONS (3)
  - Drug reaction with eosinophilia and systemic symptoms [Fatal]
  - Prothrombin time prolonged [Fatal]
  - Erythema [Unknown]
